FAERS Safety Report 4509011-9 (Version None)
Quarter: 2004Q4

REPORT INFORMATION
  Report Type: 
  Country: None (occurrence: None)
  Receive Date: 20041123
  Receipt Date: 20041118
  Transmission Date: 20050328
  Serious: Yes (Hospitalization)
  Sender: FDA-Public Use
  Company Number: US-BRISTOL-MYERS SQUIBB COMPANY-12770012

PATIENT
  Age: 63 Year
  Sex: Male
  Weight: 98 kg

DRUGS (9)
  1. ERBITUX [Suspect]
     Indication: COLON CANCER METASTATIC
     Dosage: 1ST INFUSION (860 MG), INFUSION REDUCED BY 50%, THEN D/C
     Route: 042
     Dates: start: 20041117, end: 20041117
  2. BENADRYL [Concomitant]
     Indication: PREMEDICATION
     Route: 042
     Dates: start: 20041117, end: 20041117
  3. HYDROCORTISONE [Concomitant]
     Indication: PREMEDICATION
     Route: 042
     Dates: start: 20041117, end: 20041117
  4. ZOLOFT [Concomitant]
     Dates: start: 20030101
  5. TOPROL-XL [Concomitant]
     Dates: start: 20030101
  6. VICODIN [Concomitant]
     Indication: PAIN
     Dosage: 50 MG, 2-4 TABLETS EVERY 4 HRS AS NEEDED
     Dates: start: 20030101
  7. IBUPROFEN [Concomitant]
     Indication: PAIN
     Dates: start: 20030101
  8. VITAMIN E [Concomitant]
     Dates: start: 20030101
  9. MULTI-VITAMINS [Concomitant]
     Dosage: DOSAGE FORM = 1 TABLET
     Dates: start: 20030101

REACTIONS (5)
  - BLOOD PRESSURE INCREASED [None]
  - HAEMATURIA [None]
  - HYPERSENSITIVITY [None]
  - RESPIRATORY RATE INCREASED [None]
  - TACHYCARDIA [None]
